FAERS Safety Report 4619247-4 (Version None)
Quarter: 2005Q1

REPORT INFORMATION
  Report Type: 
  Country: None (occurrence: None)
  Receive Date: 20050325
  Receipt Date: 20050318
  Transmission Date: 20050727
  Serious: Yes (Hospitalization)
  Sender: FDA-Public Use
  Company Number: DE-BRISTOL-MYERS SQUIBB COMPANY-12903324

PATIENT
  Age: 67 Year
  Sex: Male

DRUGS (5)
  1. CISPLATIN [Suspect]
     Indication: SMALL CELL LUNG CANCER STAGE UNSPECIFIED
     Dosage: START DATE:  CYCLE 1 04-JAN-2005
     Route: 042
     Dates: start: 20050222, end: 20050222
  2. TOPOTECAN HCL [Suspect]
     Indication: SMALL CELL LUNG CANCER STAGE UNSPECIFIED
     Dosage: START DATE:  CYCLE 1, 100 MG/M2, 31-DEC-2004 TO 04-JAN-2005
     Route: 042
     Dates: start: 20050222, end: 20050222
  3. BUDESONIDE [Concomitant]
  4. FRUSEMIDE [Concomitant]
  5. BISOPROLOL FUMARATE [Concomitant]

REACTIONS (4)
  - ANAEMIA [None]
  - DYSPNOEA [None]
  - PAIN [None]
  - PNEUMONIA [None]
